FAERS Safety Report 5139679-8 (Version None)
Quarter: 2006Q4

REPORT INFORMATION
  Report Type: 
  Country: None (occurrence: None)
  Receive Date: 20061024
  Receipt Date: 20061012
  Transmission Date: 20070319
  Serious: Yes (Hospitalization, Other)
  Sender: FDA-Public Use
  Company Number: A-CH2006-13237

PATIENT
  Sex: 0

DRUGS (1)
  1. TRACLEER [Suspect]
     Indication: PULMONARY HYPERTENSION
     Dosage: 62.5 MG, ORAL
     Route: 048
     Dates: start: 20050705, end: 20061010

REACTIONS (1)
  - LUNG TRANSPLANT [None]
